FAERS Safety Report 9025975 (Version 2)
Quarter: 2013Q1

REPORT INFORMATION
  Report Type: Spontaneous
  Country: US (occurrence: US)
  Receive Date: 20130122
  Receipt Date: 20130123
  Transmission Date: 20140127
  Serious: Yes (Life-Threatening, Hospitalization)
  Sender: FDA-Public Use
  Company Number: US-ROCHE-1181497

PATIENT
  Sex: Male

DRUGS (7)
  1. ACTEMRA [Suspect]
     Indication: RHEUMATOID ARTHRITIS
     Route: 042
     Dates: start: 20121016
  2. ACTEMRA [Suspect]
     Route: 042
     Dates: start: 20121016
  3. ACTEMRA [Suspect]
     Route: 042
     Dates: start: 20121218
  4. ARAVA [Concomitant]
     Route: 048
  5. PREDNISONE [Concomitant]
     Route: 048
  6. MAXZIDE [Concomitant]
     Route: 048
  7. COUMADIN [Concomitant]
     Route: 046

REACTIONS (5)
  - Myocardial infarction [Recovering/Resolving]
  - Pneumonia [Recovering/Resolving]
  - Septic shock [Recovering/Resolving]
  - Atrial fibrillation [Recovering/Resolving]
  - Chronic obstructive pulmonary disease [Recovering/Resolving]
